FAERS Safety Report 8529186-4 (Version None)
Quarter: 2012Q3

REPORT INFORMATION
  Report Type: 
  Country: None (occurrence: None)
  Receive Date: 20120723
  Receipt Date: 20120711
  Transmission Date: 20120928
  Serious: Yes (Hospitalization)
  Sender: FDA-Public Use
  Company Number: NO-AMGEN-NORSP2012044343

PATIENT
  Age: 32 Year
  Sex: Female

DRUGS (1)
  1. ENBREL [Suspect]
     Indication: PSORIATIC ARTHROPATHY
     Dosage: 25 MG, 2 TIMES/WK
     Route: 051
     Dates: start: 20120121, end: 20120401

REACTIONS (3)
  - HYPERSENSITIVITY [None]
  - HEPATITIS TOXIC [None]
  - HAEMOLYTIC ANAEMIA [None]
